FAERS Safety Report 8612552-6 (Version None)
Quarter: 2012Q3

REPORT INFORMATION
  Report Type: 
  Country: None (occurrence: None)
  Receive Date: 20120822
  Receipt Date: 20111010
  Transmission Date: 20120928
  Serious: No
  Sender: FDA-Public Use
  Company Number: US-ASTRAZENECA-2011SE60781

PATIENT
  Sex: Male

DRUGS (1)
  1. SYMBICORT [Suspect]
     Route: 055
     Dates: start: 20111008

REACTIONS (4)
  - TONGUE DISORDER [None]
  - ORAL FUNGAL INFECTION [None]
  - TONGUE BLISTERING [None]
  - DRY MOUTH [None]
